FAERS Safety Report 24774575 (Version 1)
Quarter: 2024Q4

REPORT INFORMATION
  Report Type: Spontaneous
  Country: US (occurrence: US)
  Receive Date: 20241226
  Receipt Date: 20241226
  Transmission Date: 20250115
  Serious: Yes (Other)
  Sender: AMNEAL
  Company Number: US-AMNEAL PHARMACEUTICALS-2024-AMRX-04627

PATIENT
  Age: 65 Year
  Sex: Female

DRUGS (4)
  1. LEVOTHYROXINE SODIUM [Suspect]
     Active Substance: LEVOTHYROXINE SODIUM
     Indication: Decompensated hypothyroidism
     Dosage: IV SYNTHROID (200 MCG)
     Route: 042
  2. ATROPINE [Concomitant]
     Active Substance: ATROPINE
     Indication: Decompensated hypothyroidism
     Dosage: UNK
     Route: 065
  3. HYDROCORTISONE [Concomitant]
     Active Substance: HYDROCORTISONE
     Indication: Decompensated hypothyroidism
     Dosage: UNK
     Route: 042
  4. LIOTHYRONINE [Concomitant]
     Active Substance: LIOTHYRONINE
     Indication: Product used for unknown indication
     Dosage: UNK
     Route: 042

REACTIONS (4)
  - Pulseless electrical activity [Recovered/Resolved]
  - Hypotension [Unknown]
  - Drug hypersensitivity [Recovering/Resolving]
  - Angioedema [Recovering/Resolving]
